FAERS Safety Report 11953250 (Version 1)
Quarter: 2016Q1

REPORT INFORMATION
  Report Type: Spontaneous
  Country: US (occurrence: US)
  Receive Date: 20160126
  Receipt Date: 20160126
  Transmission Date: 20160526
  Serious: No
  Sender: FDA-Public Use
  Company Number: US-DEXPHARM-20152183

PATIENT
  Age: 37 Year
  Sex: Male
  Weight: 36.28 kg

DRUGS (4)
  1. ZOLOFT [Concomitant]
     Active Substance: SERTRALINE HYDROCHLORIDE
     Indication: AGITATION
     Dosage: UNK
     Route: 065
  2. OMEPRAZOLE DELAYED RELEASE [Suspect]
     Active Substance: OMEPRAZOLE
     Indication: ABDOMINAL DISTENSION
     Dosage: 20 MG, QD, DOSE REDUCE TO HALF TABLET
     Route: 048
     Dates: start: 201509, end: 20151029
  3. OMEPRAZOLE DELAYED RELEASE [Suspect]
     Active Substance: OMEPRAZOLE
     Indication: FLATULENCE
     Dosage: 20 MG, QD, DOSE REDUCE TO HALF TABLET
     Route: 048
     Dates: start: 201509, end: 20151029
  4. OMEPRAZOLE DELAYED RELEASE [Suspect]
     Active Substance: OMEPRAZOLE
     Indication: DIARRHOEA
     Dosage: 20 MG, QD, DOSE REDUCE TO HALF TABLET
     Route: 048
     Dates: start: 201509, end: 20151029

REACTIONS (1)
  - Constipation [Recovering/Resolving]

NARRATIVE: CASE EVENT DATE: 201510
